FAERS Safety Report 7339199-6 (Version None)
Quarter: 2011Q1

REPORT INFORMATION
  Report Type: 
  Country: None (occurrence: None)
  Receive Date: 20110308
  Receipt Date: 20110228
  Transmission Date: 20110831
  Serious: Yes (Other)
  Sender: FDA-Public Use
  Company Number: JP-CEPHALON-2011000939

PATIENT
  Age: 69 Year
  Sex: Male

DRUGS (1)
  1. TRISENOX [Suspect]
     Route: 041
     Dates: start: 20101025

REACTIONS (2)
  - CONJUNCTIVAL DISORDER [None]
  - CORNEAL DISORDER [None]
